FAERS Safety Report 9490690 (Version 1)
Quarter: 2013Q3

REPORT INFORMATION
  Report Type: Spontaneous
  Country: US (occurrence: None)
  Receive Date: 20130828
  Receipt Date: 20130828
  Transmission Date: 20140515
  Serious: Yes (Hospitalization)
  Sender: FDA-Public Use
  Company Number: None

PATIENT
  Age: 78 Year
  Sex: Male
  Weight: 87.3 kg

DRUGS (11)
  1. RIVAROXABAN [Suspect]
     Indication: ANTICOAGULANT THERAPY
     Dosage: 20MG DAILY ORAL
     Route: 048
     Dates: start: 20130816, end: 20130819
  2. ASPIRIN [Concomitant]
  3. ROSUVASTATIN [Concomitant]
  4. CHOLESTRYAMINE [Concomitant]
  5. OMEGA-3 FATTY ACIDS [Concomitant]
  6. NIACIN [Concomitant]
  7. FENOFIBRATE [Concomitant]
  8. FUROSEMIDE [Concomitant]
  9. CARVEDILOL [Concomitant]
  10. MULTIVITAMIN [Concomitant]
  11. ALBUTEROL MDI [Concomitant]

REACTIONS (2)
  - Melaena [None]
  - Gastrointestinal haemorrhage [None]
